FAERS Safety Report 13156078 (Version 1)
Quarter: 2017Q1

REPORT INFORMATION
  Report Type: Spontaneous
  Country: DE (occurrence: DE)
  Receive Date: 20170126
  Receipt Date: 20170126
  Transmission Date: 20170428
  Serious: Yes (Other)
  Sender: FDA-Public Use
  Company Number: DE-TEVA-730579GER

PATIENT
  Age: 16 Year
  Sex: Female

DRUGS (1)
  1. MCP-RATIOPHARM [Suspect]
     Active Substance: METOCLOPRAMIDE HYDROCHLORIDE
     Route: 065

REACTIONS (2)
  - Torticollis [Recovering/Resolving]
  - Gaze palsy [Recovering/Resolving]
